FAERS Safety Report 21810025 (Version 2)
Quarter: 2023Q1

REPORT INFORMATION
  Report Type: Spontaneous
  Country: US (occurrence: None)
  Receive Date: 20230103
  Receipt Date: 20230221
  Transmission Date: 20230417
  Serious: No
  Sender: FDA-Public Use
  Company Number: 2022A408062

PATIENT
  Age: 28604 Day
  Sex: Female
  Weight: 49.9 kg

DRUGS (4)
  1. SYMBICORT [Suspect]
     Active Substance: BUDESONIDE\FORMOTEROL FUMARATE DIHYDRATE
     Indication: Asthma
     Dosage: 160 UG, 2 PUFFS TWICE A DAY
     Route: 055
  2. SYMBICORT [Suspect]
     Active Substance: BUDESONIDE\FORMOTEROL FUMARATE DIHYDRATE
     Indication: Chronic obstructive pulmonary disease
     Dosage: 160 UG, 2 PUFFS TWICE A DAY
     Route: 055
  3. ALBUTEROL [Concomitant]
     Active Substance: ALBUTEROL
  4. SYNTHROID [Concomitant]
     Active Substance: LEVOTHYROXINE SODIUM

REACTIONS (9)
  - COVID-19 [Unknown]
  - Weight decreased [Unknown]
  - Weight increased [Unknown]
  - Hypotension [Not Recovered/Not Resolved]
  - Intentional product misuse [Unknown]
  - Product label confusion [Unknown]
  - Product dose omission issue [Unknown]
  - Therapy cessation [Unknown]
  - Device delivery system issue [Unknown]

NARRATIVE: CASE EVENT DATE: 20211231
